FAERS Safety Report 7388974-0 (Version None)
Quarter: 2011Q2

REPORT INFORMATION
  Report Type: 
  Country: None (occurrence: None)
  Receive Date: 20110401
  Receipt Date: 20110321
  Transmission Date: 20111010
  Serious: Yes (Hospitalization, Other)
  Sender: FDA-Public Use
  Company Number: US-CELGENEUS-163-21880-11021664

PATIENT
  Sex: Male

DRUGS (10)
  1. REVLIMID [Suspect]
     Indication: MULTIPLE MYELOMA
     Dosage: 10 MILLIGRAM
     Route: 048
     Dates: start: 20110111
  2. HYDROCHLOROTHIAZIDE [Concomitant]
     Indication: HYPERTENSION
     Route: 065
     Dates: end: 20110212
  3. DECADRON [Concomitant]
     Indication: ADRENAL INSUFFICIENCY
  4. NEURONTIN [Concomitant]
     Dosage: 300 MILLIGRAM
     Route: 065
     Dates: start: 20110111
  5. LISINOPRIL [Concomitant]
     Indication: HYPERTENSION
     Dosage: 10
     Route: 065
  6. COREG [Concomitant]
     Indication: ARRHYTHMIA
     Dosage: 3.125
     Route: 065
     Dates: start: 20110214
  7. GLIMEPIRIDE [Concomitant]
     Dosage: 2 MILLIGRAM
     Route: 065
  8. DECADRON [Concomitant]
     Indication: MULTIPLE MYELOMA
     Dosage: VARIABLE
     Route: 065
     Dates: start: 20110111
  9. CRESTOR [Concomitant]
     Indication: LIPIDS
     Dosage: 10
     Route: 065
  10. FLORINEF [Concomitant]
     Indication: ADRENAL INSUFFICIENCY
     Dosage: .1
     Route: 065
     Dates: start: 20110128

REACTIONS (3)
  - DEHYDRATION [None]
  - ADRENAL INSUFFICIENCY [None]
  - SEPSIS [None]
